FAERS Safety Report 4724817-9 (Version None)
Quarter: 2005Q3

REPORT INFORMATION
  Report Type: 
  Country: None (occurrence: None)
  Receive Date: 20050722
  Receipt Date: 20050707
  Transmission Date: 20060218
  Serious: Yes (Hospitalization)
  Sender: FDA-Public Use
  Company Number: 2005BI008940

PATIENT
  Age: 76 Year
  Sex: Female

DRUGS (10)
  1. AMEVIVE [Suspect]
     Indication: PSORIASIS
     Dosage: SEE IMAGE
     Route: 030
     Dates: start: 20030611, end: 20030902
  2. AMEVIVE [Suspect]
     Indication: PSORIASIS
     Dosage: SEE IMAGE
     Route: 030
     Dates: start: 20030611, end: 20040701
  3. AMEVIVE [Suspect]
     Indication: PSORIASIS
     Dosage: SEE IMAGE
     Route: 030
     Dates: start: 20040511, end: 20040701
  4. MOBIC [Concomitant]
  5. ULTRAM [Concomitant]
  6. NORVASC [Concomitant]
  7. DIOVAN [Concomitant]
  8. FOSAMAX [Concomitant]
  9. TRIAMCINOLONE OINTMENT (TRIAMCINOLONE) [Concomitant]
  10. CLOBETASOL OINTMENT (CLOBETASOL) [Concomitant]

REACTIONS (9)
  - CHEST X-RAY ABNORMAL [None]
  - DEHYDRATION [None]
  - DIARRHOEA [None]
  - DIZZINESS [None]
  - HYPOTENSION [None]
  - OSTEOARTHRITIS [None]
  - RENAL FAILURE ACUTE [None]
  - SINUS BRADYCARDIA [None]
  - VIRAL INFECTION [None]
